FAERS Safety Report 6711926-8 (Version None)
Quarter: 2010Q2

REPORT INFORMATION
  Report Type: 
  Country: None (occurrence: None)
  Receive Date: 20100505
  Receipt Date: 20090508
  Transmission Date: 20101027
  Serious: No
  Sender: FDA-Public Use
  Company Number: US-TYCO HEALTHCARE/MALLINCKRODT-T200901018

PATIENT
  Sex: Male

DRUGS (1)
  1. METHADONE HCL [Suspect]
     Indication: PAIN
     Dosage: 10 MG, 3 TABS TWICE DAILY
     Route: 048
     Dates: start: 20070101

REACTIONS (9)
  - ANXIETY [None]
  - BLOOD PRESSURE INCREASED [None]
  - DELUSION [None]
  - FEELING ABNORMAL [None]
  - ILLOGICAL THINKING [None]
  - LETHARGY [None]
  - SPEECH DISORDER [None]
  - SUSPICIOUSNESS [None]
  - WRONG TECHNIQUE IN DRUG USAGE PROCESS [None]
